FAERS Safety Report 16702967 (Version 2)
Quarter: 2019Q4

REPORT INFORMATION
  Report Type: Spontaneous
  Country: FR (occurrence: FR)
  Receive Date: 20190814
  Receipt Date: 20191219
  Transmission Date: 20200122
  Serious: Yes (Hospitalization)
  Sender: FDA-Public Use
  Company Number: FR-MYLANLABS-2019M1076007

PATIENT
  Age: 86 Year
  Sex: Male
  Weight: 45 kg

DRUGS (10)
  1. COLCHICINE OPOCALCIUM [Suspect]
     Active Substance: COLCHICINE
     Dosage: 1 MILLIGRAM, QD  (1 IN 1 D)
     Route: 048
     Dates: start: 20190705, end: 20190711
  2. INEXIUM                            /01479302/ [Concomitant]
     Active Substance: ESOMEPRAZOLE MAGNESIUM
     Indication: PRODUCT USED FOR UNKNOWN INDICATION
     Dosage: 1 DOSAGE FORM, QD
     Route: 048
     Dates: end: 20190630
  3. BISOPROLOLO MYLAN [Suspect]
     Active Substance: BISOPROLOL FUMARATE
     Indication: PRODUCT USED FOR UNKNOWN INDICATION
     Dosage: 1.25 MILLIGRAM, QD
     Route: 048
  4. COLCHICINE OPOCALCIUM [Suspect]
     Active Substance: COLCHICINE
     Indication: CARDIAC FAILURE
     Dosage: 1 DOSAGE FORM, QD  (1 IN 1 D)
     Route: 048
     Dates: start: 20190626, end: 20190630
  5. ATORVASTATIN ARROW [Suspect]
     Active Substance: ATORVASTATIN CALCIUM
     Indication: PRODUCT USED FOR UNKNOWN INDICATION
     Dosage: 10 MILLIGRAM, QD (1 IN 1 D)
     Route: 048
  6. ASPEGIC                            /00002703/ [Suspect]
     Active Substance: ASPIRIN DL-LYSINE
     Dosage: 3 DOSAGE FORM, QD
     Route: 048
     Dates: start: 20190701
  7. ENTRESTO [Concomitant]
     Active Substance: SACUBITRIL\VALSARTAN
     Indication: PRODUCT USED FOR UNKNOWN INDICATION
     Dosage: 2 DOSAGE FORM, QD/ 49 MG/51MG
     Route: 048
     Dates: start: 20190701
  8. INSPRA [Concomitant]
     Active Substance: EPLERENONE
     Indication: PRODUCT USED FOR UNKNOWN INDICATION
     Dosage: 1 DOSAGE FORM, QD
     Route: 048
     Dates: end: 20190701
  9. LANSOPRAZOLO MYLAN [Suspect]
     Active Substance: LANSOPRAZOLE
     Indication: PRODUCT USED FOR UNKNOWN INDICATION
     Dosage: 1 DOSAGE FORM, QD (1 IN 1 D)
     Route: 048
     Dates: start: 20190701, end: 20190715
  10. ASPEGIC                            /00002703/ [Suspect]
     Active Substance: ASPIRIN DL-LYSINE
     Indication: CARDIAC FAILURE
     Dosage: 2 DOSAGE FORM, QD (1 IN 1 D)
     Route: 048
     Dates: start: 20190626, end: 20190630

REACTIONS (1)
  - Thrombocytopenia [Recovering/Resolving]

NARRATIVE: CASE EVENT DATE: 20190630
